FAERS Safety Report 23410269 (Version 2)
Quarter: 2024Q1

REPORT INFORMATION
  Report Type: Spontaneous
  Country: US (occurrence: US)
  Receive Date: 20240117
  Receipt Date: 20240130
  Transmission Date: 20240410
  Serious: No
  Sender: FDA-Public Use
  Company Number: US-SA-SAC20240111000437

PATIENT
  Age: 61 Year
  Sex: Female

DRUGS (2)
  1. DUPIXENT [Suspect]
     Active Substance: DUPILUMAB
     Indication: Eczema
     Dosage: INJECT 2 SYRINGES UNDER THE SKIN ON DAY 1
     Route: 058
     Dates: start: 20231023, end: 20231023
  2. DUPIXENT [Suspect]
     Active Substance: DUPILUMAB
     Indication: Asthma
     Dosage: INJECT 1 SYRINGE ON DAY 15, THEN 1 SYRINGE EVERY 14 DAYS THEREAFTER
     Route: 058
     Dates: start: 20231106

REACTIONS (4)
  - Pruritus [Unknown]
  - Headache [Unknown]
  - Dry eye [Unknown]
  - Rash [Unknown]
